FAERS Safety Report 16173307 (Version 1)
Quarter: 2019Q2

REPORT INFORMATION
  Report Type: Spontaneous
  Country: US (occurrence: US)
  Receive Date: 20190409
  Receipt Date: 20190409
  Transmission Date: 20190711
  Serious: No
  Sender: FDA-Public Use
  Company Number: US-BAYER-2019-071025

PATIENT
  Sex: Female

DRUGS (3)
  1. TRAMADOL. [Concomitant]
     Active Substance: TRAMADOL
     Indication: RASH
  2. DOAN^S BACKACHE PILLS [AGATHOSMA SPP.;ALOIN;PARACETAMOL;SALICYLATE SODIUM] [Suspect]
     Active Substance: ACETAMINOPHEN\ALOIN\HERBALS\SODIUM SALICYLATE
     Indication: PAIN
     Route: 061
  3. CLARITIN [Suspect]
     Active Substance: LORATADINE
     Route: 065
     Dates: start: 20190407

REACTIONS (2)
  - Rash [Unknown]
  - Product use in unapproved indication [Unknown]
